FAERS Safety Report 7699529-2 (Version None)
Quarter: 2011Q3

REPORT INFORMATION
  Report Type: 
  Country: None (occurrence: None)
  Receive Date: 20110820
  Receipt Date: 20110809
  Transmission Date: 20111222
  Serious: Yes (Hospitalization, Other)
  Sender: FDA-Public Use
  Company Number: US-AMGEN-USASP2011040427

PATIENT
  Age: 53 Year
  Sex: Female

DRUGS (2)
  1. ENBREL [Suspect]
     Indication: RHEUMATOID ARTHRITIS
     Dosage: 50 MG, QWK
     Dates: start: 20101101
  2. COUMADIN [Concomitant]
     Dosage: UNK

REACTIONS (12)
  - BLISTER [None]
  - BLOOD GLUCOSE INCREASED [None]
  - FAECES DISCOLOURED [None]
  - NAUSEA [None]
  - HEPATIC ENZYME INCREASED [None]
  - BACK PAIN [None]
  - PULMONARY THROMBOSIS [None]
  - ANTICOAGULATION DRUG LEVEL ABOVE THERAPEUTIC [None]
  - MUSCLE SPASMS [None]
  - HEADACHE [None]
  - CHEST PAIN [None]
  - ARTHRALGIA [None]
